FAERS Safety Report 7063521-1 (Version None)
Quarter: 2010Q4

REPORT INFORMATION
  Report Type: 
  Country: None (occurrence: None)
  Receive Date: 20101026
  Receipt Date: 20100525
  Transmission Date: 20110411
  Serious: No
  Sender: FDA-Public Use
  Company Number: US-ABBOTT-10P-163-0647753-00

PATIENT
  Age: 49 Year
  Sex: Female

DRUGS (1)
  1. LUPRON DEPOT [Suspect]
     Indication: PRODUCT USED FOR UNKNOWN INDICATION

REACTIONS (6)
  - HOT FLUSH [None]
  - MENOPAUSE [None]
  - MOOD SWINGS [None]
  - NIGHT SWEATS [None]
  - PAIN [None]
  - SWELLING [None]
